FAERS Safety Report 12507724 (Version 1)
Quarter: 2016Q2

REPORT INFORMATION
  Report Type: Spontaneous
  Country: US (occurrence: None)
  Receive Date: 20160628
  Receipt Date: 20160628
  Transmission Date: 20160815
  Serious: Yes (Hospitalization)
  Sender: FDA-Public Use
  Company Number: None

PATIENT
  Age: 46 Year
  Sex: Female
  Weight: 67.13 kg

DRUGS (12)
  1. ACYCLOVIR. [Concomitant]
     Active Substance: ACYCLOVIR
  2. GABAPENTIN. [Concomitant]
     Active Substance: GABAPENTIN
  3. TIZANIDINE. [Concomitant]
     Active Substance: TIZANIDINE
  4. METOPROLOL TARTRATE. [Suspect]
     Active Substance: METOPROLOL TARTRATE
  5. LANTUS [Concomitant]
     Active Substance: INSULIN GLARGINE
  6. ALEMTUZUMAB GENZYME [Suspect]
     Active Substance: ALEMTUZUMAB
     Indication: MULTIPLE SCLEROSIS
     Route: 042
     Dates: start: 20150114, end: 20150121
  7. ASPIRIN. [Concomitant]
     Active Substance: ASPIRIN
  8. METFORMIN [Concomitant]
     Active Substance: METFORMIN HYDROCHLORIDE
  9. VITAMIN D3 [Concomitant]
     Active Substance: CHOLECALCIFEROL
  10. ZOFRAN [Concomitant]
     Active Substance: ONDANSETRON HYDROCHLORIDE
  11. SOLU-MEDROL [Suspect]
     Active Substance: METHYLPREDNISOLONE SODIUM SUCCINATE
     Route: 042
     Dates: start: 20150119, end: 20150121
  12. PROVIGIL [Concomitant]
     Active Substance: MODAFINIL

REACTIONS (4)
  - Pyrexia [None]
  - Dyspnoea [None]
  - Histoplasmosis disseminated [None]
  - Oxygen saturation decreased [None]

NARRATIVE: CASE EVENT DATE: 20160526
